FAERS Safety Report 5072560-1 (Version None)
Quarter: 2006Q3

REPORT INFORMATION
  Report Type: 
  Country: None (occurrence: None)
  Receive Date: 20060801
  Receipt Date: 20060717
  Transmission Date: 20061208
  Serious: Yes (Hospitalization)
  Sender: FDA-Public Use
  Company Number: US200602004117

PATIENT
  Age: 75 Year
  Sex: Female

DRUGS (13)
  1. FORTEO [Suspect]
     Indication: OSTEOPOROSIS
     Dates: start: 20040101
  2. FORTEO [Concomitant]
  3. FLONASE [Concomitant]
  4. URSO 250 [Concomitant]
  5. LACTULOSE [Concomitant]
  6. PROTONIX [Concomitant]
  7. LEXAPRO [Concomitant]
  8. LASIX (FUROSEMIDE, FUROSEMIDE SODIUM) [Concomitant]
  9. POTASSIUM CHLORIDE [Concomitant]
  10. SPIRONO (SPIRONOLACTONE) [Concomitant]
  11. NITROGLYCERINUM (GLYCERYL TRINITRATE) [Concomitant]
  12. PROPRANOLOL [Concomitant]
  13. FORTEO [Concomitant]

REACTIONS (39)
  - ABDOMINAL DISTENSION [None]
  - ABDOMINAL PAIN LOWER [None]
  - ARTHRALGIA [None]
  - ARTHRITIS [None]
  - ASTHENIA [None]
  - ATELECTASIS [None]
  - BACK PAIN [None]
  - BILIARY CIRRHOSIS [None]
  - BLOOD PRESSURE DECREASED [None]
  - CONSTIPATION [None]
  - CONTUSION [None]
  - COUGH [None]
  - DECREASED APPETITE [None]
  - DELIRIUM [None]
  - DIZZINESS [None]
  - DYSPHONIA [None]
  - DYSPNOEA [None]
  - FATIGUE [None]
  - GROIN PAIN [None]
  - HAEMATOCHEZIA [None]
  - HEADACHE [None]
  - HEPATIC CIRRHOSIS [None]
  - HEPATIC ENCEPHALOPATHY [None]
  - INCONTINENCE [None]
  - INJECTION SITE PAIN [None]
  - MEMORY IMPAIRMENT [None]
  - MENTAL STATUS CHANGES [None]
  - NASAL CONGESTION [None]
  - NAUSEA [None]
  - PAIN IN EXTREMITY [None]
  - PHARMACEUTICAL PRODUCT COMPLAINT [None]
  - PLEURAL EFFUSION [None]
  - PORTAL HYPERTENSION [None]
  - POST PROCEDURAL HAEMATOMA [None]
  - PULMONARY OEDEMA [None]
  - REFUSAL OF TREATMENT BY PATIENT [None]
  - RHINORRHOEA [None]
  - STENT PLACEMENT [None]
  - WHITE BLOOD CELL COUNT INCREASED [None]
